FAERS Safety Report 24853054 (Version 4)
Quarter: 2025Q3

REPORT INFORMATION
  Report Type: Report from Study
  Country: US (occurrence: US)
  Receive Date: 20250116
  Receipt Date: 20250710
  Transmission Date: 20251021
  Serious: Yes (Hospitalization, Other)
  Sender: ABBVIE
  Company Number: US-ABBVIE-5951379

PATIENT
  Age: 73 Year
  Sex: Female
  Weight: 51 kg

DRUGS (7)
  1. VIBERZI [Suspect]
     Active Substance: ELUXADOLINE
     Indication: Colitis microscopic
     Dosage: FORM STRENGTH: 100 MILLIGRAM
     Route: 048
     Dates: start: 2022, end: 202410
  2. VIBERZI [Suspect]
     Active Substance: ELUXADOLINE
     Indication: Colitis microscopic
     Dosage: DRUG START DATE-DEC-2024 TO -JAN-2025, FORM STRENGTH: 100 MILLIGRAM
     Route: 048
     Dates: start: 202412
  3. NIFEDIPINE [Concomitant]
     Active Substance: NIFEDIPINE
     Indication: Raynaud^s phenomenon
  4. ASACOL [Concomitant]
     Active Substance: MESALAMINE
     Indication: Colitis microscopic
  5. PROLIA [Concomitant]
     Active Substance: DENOSUMAB
     Indication: Osteopenia
  6. CYMBALTA [Suspect]
     Active Substance: DULOXETINE HYDROCHLORIDE
     Indication: Nervous system disorder
     Route: 048
     Dates: start: 202403, end: 202403
  7. SPIRONOLACTONE [Concomitant]
     Active Substance: SPIRONOLACTONE
     Indication: Blood testosterone decreased

REACTIONS (9)
  - Spinal stenosis [Recovering/Resolving]
  - Enlarged uvula [Recovered/Resolved]
  - Weight decreased [Recovered/Resolved]
  - Anaphylactic reaction [Recovered/Resolved]
  - Musculoskeletal disorder [Recovered/Resolved]
  - Posture abnormal [Not Recovered/Not Resolved]
  - Herpes zoster [Recovered/Resolved]
  - Dyspnoea [Recovered/Resolved]
  - Intervertebral disc degeneration [Recovering/Resolving]

NARRATIVE: CASE EVENT DATE: 20240201
